FAERS Safety Report 10033555 (Version 1)
Quarter: 2014Q1

REPORT INFORMATION
  Report Type: Spontaneous
  Country: US (occurrence: US)
  Receive Date: 20140325
  Receipt Date: 20140325
  Transmission Date: 20141002
  Serious: No
  Sender: FDA-Public Use
  Company Number: US-BIOGENIDEC-2014BI026784

PATIENT
  Age: 28 Year
  Sex: Female

DRUGS (6)
  1. AVONEX [Suspect]
     Indication: MULTIPLE SCLEROSIS
     Route: 030
  2. AVONEX [Suspect]
     Indication: MULTIPLE SCLEROSIS
     Route: 030
     Dates: start: 20080511, end: 20131008
  3. TECFIDERA [Concomitant]
     Indication: RELAPSING-REMITTING MULTIPLE SCLEROSIS
     Route: 048
     Dates: start: 20131008
  4. AMBIEN [Concomitant]
  5. AMITRIPTYLINE [Concomitant]
  6. ZANAFLEX [Concomitant]

REACTIONS (2)
  - Drug intolerance [Recovered/Resolved]
  - Malaise [Recovered/Resolved]
